FAERS Safety Report 8448086-1 (Version None)
Quarter: 2012Q2

REPORT INFORMATION
  Report Type: 
  Country: None (occurrence: None)
  Receive Date: 20120619
  Receipt Date: 20120612
  Transmission Date: 20120825
  Serious: Yes (Death, Other)
  Sender: FDA-Public Use
  Company Number: FR-ELI_LILLY_AND_COMPANY-FR201206004282

PATIENT
  Age: 54 Year
  Sex: Male

DRUGS (4)
  1. OXALIPLATIN [Concomitant]
     Dosage: 1 MG/M2, ON DAY 2
     Dates: start: 20090901, end: 20100201
  2. OXALIPLATIN [Concomitant]
     Dosage: UNK
     Dates: start: 20101001
  3. GEMCITABINE HYDROCHLORIDE [Suspect]
     Dosage: UNK
     Dates: start: 20101001
  4. GEMCITABINE HYDROCHLORIDE [Suspect]
     Indication: BILE DUCT CANCER
     Dosage: 1000 MG/M2, DAY 1
     Dates: start: 20090901

REACTIONS (4)
  - HAEMOLYTIC URAEMIC SYNDROME [None]
  - DEATH [None]
  - MYALGIA [None]
  - NEOPLASM PROGRESSION [None]
